FAERS Safety Report 9193816 (Version 3)
Quarter: 2013Q2

REPORT INFORMATION
  Report Type: Spontaneous
  Country: US (occurrence: US)
  Receive Date: 20130327
  Receipt Date: 20130521
  Transmission Date: 20140414
  Serious: Yes (Hospitalization)
  Sender: FDA-Public Use
  Company Number: US-GILEAD-2013-0072405

PATIENT
  Sex: Male

DRUGS (3)
  1. LETAIRIS [Suspect]
     Indication: PRODUCT USED FOR UNKNOWN INDICATION
     Dosage: 5 MG, QD
     Dates: start: 20120806
  2. REMODULIN [Concomitant]
  3. ADCIRCA [Concomitant]

REACTIONS (4)
  - Pulmonary oedema [Unknown]
  - Cardiac disorder [Unknown]
  - Lung disorder [Unknown]
  - Device related infection [Unknown]
